FAERS Safety Report 5884130-3 (Version None)
Quarter: 2008Q3

REPORT INFORMATION
  Report Type: 
  Country: None (occurrence: None)
  Receive Date: 20080915
  Receipt Date: 20080902
  Transmission Date: 20090109
  Serious: Yes (Hospitalization)
  Sender: FDA-Public Use
  Company Number: PHEH1995US03269

PATIENT
  Sex: Female
  Weight: 130 kg

DRUGS (7)
  1. NEORAL [Suspect]
     Route: 048
     Dates: start: 19950511
  2. PREDNISONE [Concomitant]
     Route: 048
     Dates: start: 19950501
  3. IMURAN [Concomitant]
     Route: 048
     Dates: start: 19950501, end: 19950611
  4. CEFTAZIDIME [Concomitant]
     Dates: start: 19950601
  5. G-CSF (GRANULOCYTE COLONY STIMULATING FACTOR) [Concomitant]
     Route: 058
     Dates: start: 19950614
  6. ACYCLOVIR [Concomitant]
     Dates: start: 19950501
  7. PEPCID [Concomitant]
     Dates: start: 19950501

REACTIONS (4)
  - HYPOTENSION [None]
  - RENAL FAILURE ACUTE [None]
  - SEPSIS [None]
  - THINKING ABNORMAL [None]
